FAERS Safety Report 5223107-8 (Version None)
Quarter: 2007Q1

REPORT INFORMATION
  Report Type: 
  Country: None (occurrence: None)
  Receive Date: 20061201
  Receipt Date: 20060724
  Transmission Date: 20070707
  Serious: No
  Sender: FDA-Public Use
  Company Number: 2006PV018167

PATIENT
  Age: 73 Year
  Sex: Male
  Weight: 125.1928 kg

DRUGS (7)
  1. BYETTA [Suspect]
     Indication: DIABETES MELLITUS NON-INSULIN-DEPENDENT
     Dosage: SEE IMAGE
     Route: 058
     Dates: start: 20060501, end: 20060601
  2. BYETTA [Suspect]
     Indication: DIABETES MELLITUS NON-INSULIN-DEPENDENT
     Dosage: SEE IMAGE
     Route: 058
     Dates: start: 20060601, end: 20060723
  3. DIAMOX [Suspect]
     Dates: end: 20060601
  4. ACTOS [Concomitant]
  5. ENALAPRIL MALEATE [Concomitant]
  6. TOPROL-XL [Concomitant]
  7. CRESTOR [Concomitant]

REACTIONS (3)
  - BLOOD PRESSURE INCREASED [None]
  - CATARACT OPERATION [None]
  - DIARRHOEA [None]
